FAERS Safety Report 8087023-9 (Version None)
Quarter: 2012Q1

REPORT INFORMATION
  Report Type: 
  Country: None (occurrence: None)
  Receive Date: 20120128
  Receipt Date: 20110523
  Transmission Date: 20120608
  Serious: No
  Sender: FDA-Public Use
  Company Number: US-ABBOTT-11P-163-0727633-00

PATIENT
  Sex: Female

DRUGS (14)
  1. ZETIA [Concomitant]
     Indication: BLOOD CHOLESTEROL INCREASED
  2. OMEPRAZOLE [Concomitant]
     Indication: GASTROOESOPHAGEAL REFLUX DISEASE
  3. SULFAZINE [Concomitant]
     Indication: RHEUMATOID ARTHRITIS
  4. XANAX [Concomitant]
     Indication: INSOMNIA
  5. OXCON/APAP [Concomitant]
     Indication: PAIN
     Dosage: 5/325MG, PRN
  6. LYRICA [Concomitant]
  7. CRANBERRY [Concomitant]
     Indication: URINARY TRACT INFECTION
     Dosage: SOFT GELS, DAILY
  8. PREDNISONE TAB [Concomitant]
     Indication: RHEUMATOID ARTHRITIS
  9. HUMIRA [Suspect]
     Indication: RHEUMATOID ARTHRITIS
     Route: 058
     Dates: start: 20110521
  10. LYRICA [Concomitant]
     Indication: PAIN
  11. AMBIEN [Concomitant]
     Indication: INSOMNIA
     Dosage: AT BEDTIME
  12. HYDROCHLORATHIAZIDE [Concomitant]
     Indication: HYPERTENSION
  13. PREMARIN [Concomitant]
     Indication: BLOOD OESTROGEN DECREASED
  14. KLOR-CON [Concomitant]
     Indication: BLOOD POTASSIUM DECREASED

REACTIONS (1)
  - INJECTION SITE PAIN [None]
